FAERS Safety Report 7323464 (Version 2)
Quarter: 2020Q3

REPORT INFORMATION
  Report Type: Report from Study
  Country: US (occurrence: US)
  Receive Date: 20100318
  Receipt Date: 20100911
  Transmission Date: 20201104
  Serious: Yes (Hospitalization, Other)
  Sender: FDA-Public Use
  Company Number: US-JNJFOC-20080600866

PATIENT
  Age: 54 Year
  Sex: Male
  Weight: 151.5 kg

DRUGS (13)
  1. CNTO 1275 [Suspect]
     Active Substance: USTEKINUMAB
     Route: 058
  2. CNTO 1275 [Suspect]
     Active Substance: USTEKINUMAB
     Route: 058
  3. CNTO 1275 [Suspect]
     Active Substance: USTEKINUMAB
     Route: 058
  4. CNTO 1275 [Suspect]
     Active Substance: USTEKINUMAB
     Route: 058
  5. CNTO 1275 [Suspect]
     Active Substance: USTEKINUMAB
     Indication: PSORIASIS
     Route: 058
  6. CNTO 1275 [Suspect]
     Active Substance: USTEKINUMAB
     Route: 058
  7. CNTO 1275 [Suspect]
     Active Substance: USTEKINUMAB
     Route: 058
  8. CNTO 1275 [Suspect]
     Active Substance: USTEKINUMAB
     Route: 058
  9. CNTO 1275 [Suspect]
     Active Substance: USTEKINUMAB
     Route: 058
  10. CNTO 1275 [Suspect]
     Active Substance: USTEKINUMAB
     Route: 058
  11. METOPROLOL TARTRATE. [Concomitant]
     Active Substance: METOPROLOL TARTRATE
     Route: 048
  12. CNTO 1275 [Suspect]
     Active Substance: USTEKINUMAB
     Route: 058
  13. IBUPROFEN. [Concomitant]
     Active Substance: IBUPROFEN
     Route: 048

REACTIONS (3)
  - Bradycardia [Recovered/Resolved]
  - Nephrolithiasis [Recovered/Resolved]
  - Abdominal abscess [Recovered/Resolved]

NARRATIVE: CASE EVENT DATE: 20080524
